FAERS Safety Report 8144286-9 (Version None)
Quarter: 2012Q1

REPORT INFORMATION
  Report Type: 
  Country: None (occurrence: None)
  Receive Date: 20120214
  Receipt Date: 20120208
  Transmission Date: 20120608
  Serious: Yes (Hospitalization)
  Sender: FDA-Public Use
  Company Number: DAV-AE-FUR-12-01

PATIENT
  Age: 51 Year
  Sex: Female

DRUGS (7)
  1. FUROSEMIDE [Suspect]
  2. ASPIRIN [Concomitant]
  3. ISOSORBIDE MONONITRATE [Concomitant]
  4. METOPROLOL TARTRATE [Concomitant]
  5. MULTI-VITAMINS [Concomitant]
  6. LEVOTHYROXINE SODIUM [Concomitant]
  7. ESOMEPRAZOLE SODIUM [Concomitant]

REACTIONS (6)
  - HAEMORRHOIDS [None]
  - GASTROINTESTINAL TRACT MUCOSAL PIGMENTATION [None]
  - DIVERTICULUM [None]
  - HAEMOGLOBIN DECREASED [None]
  - HIATUS HERNIA [None]
  - GASTRITIS [None]
